FAERS Safety Report 9886977 (Version 1)
Quarter: 2014Q1

REPORT INFORMATION
  Report Type: Spontaneous
  Country: US (occurrence: US)
  Receive Date: 20140211
  Receipt Date: 20140211
  Transmission Date: 20141002
  Serious: No
  Sender: FDA-Public Use
  Company Number: US-009507513-1402USA004606

PATIENT
  Age: 17 Year
  Sex: Female

DRUGS (1)
  1. NEXPLANON [Suspect]
     Dosage: 1 ROD/3 YEARS
     Route: 059
     Dates: start: 20131028

REACTIONS (3)
  - Vaginal haemorrhage [Unknown]
  - Myalgia [Unknown]
  - Injury [Unknown]
